FAERS Safety Report 10165925 (Version 2)
Quarter: 2014Q2

REPORT INFORMATION
  Report Type: Spontaneous
  Country: TR (occurrence: TR)
  Receive Date: 20140510
  Receipt Date: 20140518
  Transmission Date: 20141212
  Serious: Yes (Death, Life-Threatening, Hospitalization, Other)
  Sender: FDA-Public Use
  Company Number: TR-009507513-1405TUR003481

PATIENT
  Age: 53 Year
  Sex: Male
  Weight: 96 kg

DRUGS (7)
  1. TEMODAL [Suspect]
     Indication: GLIOBLASTOMA MULTIFORME
     Dosage: 150 MG/M2, QD, 1ST CURE, FREQUENCY 5 DAYS PERIOD ONCE IN 28 DAYS
     Route: 048
     Dates: start: 20140115, end: 20140119
  2. TEMODAL [Suspect]
     Dosage: 200 MG/M2, QD, 2ND CURE
     Route: 048
     Dates: start: 20140212, end: 20140216
  3. TEMODAL [Suspect]
     Dosage: 200 MG/M2, QD, 3RD CURE
     Route: 048
     Dates: start: 20140312, end: 20140316
  4. TEMODAL [Suspect]
     Dosage: 200 MG/M2, QD, 4TH CURE
     Route: 048
     Dates: start: 20140410, end: 20140414
  5. TEMODAL [Suspect]
     Dosage: 145 MG, QD
     Route: 048
  6. TEMODAL [Suspect]
     Dosage: 125 MG/M2, UNK
     Route: 048
  7. INSULIN [Concomitant]
     Dosage: UNK

REACTIONS (4)
  - Cardio-respiratory arrest [Fatal]
  - Septic shock [Fatal]
  - Hypotension [Not Recovered/Not Resolved]
  - Pancytopenia [Not Recovered/Not Resolved]
